FAERS Safety Report 12741735 (Version 2)
Quarter: 2016Q4

REPORT INFORMATION
  Report Type: Spontaneous
  Country: JP (occurrence: JP)
  Receive Date: 20160914
  Receipt Date: 20161104
  Transmission Date: 20170207
  Serious: Yes (Other)
  Sender: FDA-Public Use
  Company Number: JP-GLAXOSMITHKLINE-JP2016JPN113729

PATIENT
  Age: 7 Day
  Sex: Female
  Weight: 3 kg

DRUGS (8)
  1. DOBUTAMINE [Concomitant]
     Active Substance: DOBUTAMINE\DOBUTAMINE HYDROCHLORIDE
     Dosage: UNK
  2. FLOLAN [Suspect]
     Active Substance: EPOPROSTENOL SODIUM
     Dosage: UNK
     Route: 042
     Dates: start: 20160804, end: 20160805
  3. KAKODIN [Concomitant]
     Dosage: UNK
  4. GLUCOSE [Concomitant]
     Active Substance: DEXTROSE
     Dosage: UNK
  5. FLOLAN [Suspect]
     Active Substance: EPOPROSTENOL SODIUM
     Indication: PULMONARY HYPERTENSION
     Dosage: UNK
     Route: 042
     Dates: start: 20160729, end: 20160804
  6. CORETEC [Concomitant]
     Dosage: UNK
  7. BOSMIN [Concomitant]
     Active Substance: EPINEPHRINE
     Dosage: UNK
  8. CALCICOL [Concomitant]
     Active Substance: CALCIUM GLUCONATE
     Dosage: UNK

REACTIONS (3)
  - Catheter site swelling [Recovering/Resolving]
  - Drug administered to patient of inappropriate age [Unknown]
  - Catheter site vasculitis [Recovering/Resolving]

NARRATIVE: CASE EVENT DATE: 20160803
